FAERS Safety Report 4906141-4 (Version None)
Quarter: 2006Q1

REPORT INFORMATION
  Report Type: 
  Country: None (occurrence: None)
  Receive Date: 20060206
  Receipt Date: 20060120
  Transmission Date: 20060701
  Serious: Yes (Hospitalization)
  Sender: FDA-Public Use
  Company Number: GBR-2006-0002079

PATIENT
  Age: 66 Year
  Sex: Female

DRUGS (5)
  1. MORPHINE SULFATE [Suspect]
     Indication: PAIN
     Dosage: 400 MG, BID, ORAL; 60 MG, BID, ORAL
     Route: 048
  2. MORPHINE SULFATE [Suspect]
     Dosage: 100 MG, PRN, ORAL
     Route: 048
  3. NORTRIPTYLINE HCL [Concomitant]
  4. DEXAMETHASONE (DEXAMETASONE) [Concomitant]
  5. OMEPRAZOLE [Concomitant]

REACTIONS (2)
  - CONSTIPATION [None]
  - FAECALOMA [None]
